FAERS Safety Report 21468444 (Version 1)
Quarter: 2022Q4

REPORT INFORMATION
  Report Type: Spontaneous
  Country: US (occurrence: None)
  Receive Date: 20221015
  Receipt Date: 20221015
  Transmission Date: 20230112
  Serious: No
  Sender: FDA-Public Use
  Company Number: None

PATIENT
  Age: 66 Year
  Sex: Male
  Weight: 75.8 kg

DRUGS (2)
  1. ERBITUX [Suspect]
     Active Substance: CETUXIMAB
  2. TAXOTERE [Suspect]
     Active Substance: DOCETAXEL

REACTIONS (2)
  - Osteonecrosis of jaw [None]
  - Osteoradionecrosis [None]

NARRATIVE: CASE EVENT DATE: 20220524
